FAERS Safety Report 9158796 (Version 2)
Quarter: 2013Q1

REPORT INFORMATION
  Report Type: Spontaneous
  Country: US (occurrence: US)
  Receive Date: 20130226
  Receipt Date: 20130327
  Transmission Date: 20140127
  Serious: Yes (Other)
  Sender: FDA-Public Use
  Company Number: US-RB-050302-13

PATIENT
  Age: 55 Year
  Sex: Female

DRUGS (4)
  1. SUBOXONE TABLET [Suspect]
     Indication: DRUG DEPENDENCE
     Dosage: INTERMITTENTLY, VARIOUS DOSES
     Route: 060
     Dates: start: 2006
  2. SUBOXONE FILM [Suspect]
     Indication: DRUG DEPENDENCE
     Dosage: SUBOXONE FILM; INTERMITTENTLY, VARIOUS DOSES
     Route: 060
     Dates: start: 201301
  3. ALCOHOL [Suspect]
     Indication: PRODUCT USED FOR UNKNOWN INDICATION
     Dosage: DOSING DETAILS UNKNOWN
     Route: 065
     Dates: start: 2006
  4. EFFEXOR [Concomitant]
     Indication: DEPRESSION
     Dosage: DOSING DETAILS UNKNOWN
     Route: 065
     Dates: start: 1998

REACTIONS (6)
  - Loss of consciousness [Recovered/Resolved]
  - Road traffic accident [Recovered/Resolved]
  - Substance abuse [Not Recovered/Not Resolved]
  - Alcohol poisoning [Recovered/Resolved]
  - Drug abuse [Recovered/Resolved]
  - Euphoric mood [Not Recovered/Not Resolved]
